FAERS Safety Report 9671439 (Version 2)
Quarter: 2013Q4

REPORT INFORMATION
  Report Type: Report from Study
  Country: MX (occurrence: MX)
  Receive Date: 20131106
  Receipt Date: 20131118
  Transmission Date: 20140711
  Serious: Yes (Other)
  Sender: FDA-Public Use
  Company Number: PHHY2013MX125836

PATIENT
  Age: 42 Year
  Sex: Female

DRUGS (2)
  1. TEGRETOL [Suspect]
     Indication: CONVULSION
     Dosage: 400 UKN, UNK
     Route: 048
     Dates: start: 19991104
  2. PLAVIX [Concomitant]
     Indication: OXYGEN SATURATION DECREASED
     Dosage: 1 UKN, UNK
     Dates: start: 20131004

REACTIONS (2)
  - Mental impairment [Not Recovered/Not Resolved]
  - Convulsion [Not Recovered/Not Resolved]
